FAERS Safety Report 25387685 (Version 1)
Quarter: 2025Q2

REPORT INFORMATION
  Report Type: Spontaneous
  Country: US (occurrence: US)
  Receive Date: 20250603
  Receipt Date: 20250603
  Transmission Date: 20250717
  Serious: Yes (Death)
  Sender: TEVA
  Company Number: US-TEVA-VS-3336626

PATIENT
  Age: 67 Year
  Sex: Male

DRUGS (1)
  1. AUSTEDO [Suspect]
     Active Substance: DEUTETRABENAZINE
     Indication: Dyskinesia
     Dosage: 12 MG, 2 TABLET BY MOUTH TWICE DAILY
     Route: 048

REACTIONS (1)
  - Death [Fatal]
